FAERS Safety Report 14354330 (Version 1)
Quarter: 2018Q1

REPORT INFORMATION
  Report Type: Spontaneous
  Country: US (occurrence: US)
  Receive Date: 20180104
  Receipt Date: 20180104
  Transmission Date: 20180509
  Serious: No
  Sender: FDA-Public Use
  Company Number: None

PATIENT
  Age: 46 Year
  Sex: Female
  Weight: 136.08 kg

DRUGS (2)
  1. OXYCODONE HCL ER 20MG [Suspect]
     Active Substance: OXYCODONE HYDROCHLORIDE
     Indication: PAIN
     Dosage: 1 TABLET TWICE A DAY; 60 BID ORAL
     Route: 048
     Dates: start: 20170911
  2. OXYCODONE HCL ER 20MG [Suspect]
     Active Substance: OXYCODONE HYDROCHLORIDE
     Indication: BACK PAIN
     Dosage: 1 TABLET TWICE A DAY; 60 BID ORAL
     Route: 048
     Dates: start: 20170911

REACTIONS (2)
  - Drug effect decreased [None]
  - Product substitution issue [None]

NARRATIVE: CASE EVENT DATE: 20171213
